FAERS Safety Report 8055180-6 (Version None)
Quarter: 2012Q1

REPORT INFORMATION
  Report Type: 
  Country: None (occurrence: None)
  Receive Date: 20120119
  Receipt Date: 20120112
  Transmission Date: 20120608
  Serious: Yes (Other)
  Sender: FDA-Public Use
  Company Number: PHHY2009DE67747

PATIENT

DRUGS (2)
  1. EXTAVIA [Suspect]
     Dosage: 0.75 ML, UNK
     Dates: start: 20090501
  2. EXTAVIA [Suspect]
     Indication: MULTIPLE SCLEROSIS
     Dosage: 250 UG EVERY OTHER DAY
     Route: 058
     Dates: start: 20090429

REACTIONS (16)
  - MUSCLE SPASTICITY [None]
  - CONCOMITANT DISEASE AGGRAVATED [None]
  - MULTIPLE SCLEROSIS RELAPSE [None]
  - LYMPHOEDEMA [None]
  - HYPERSENSITIVITY [None]
  - HYPERTENSION [None]
  - ORAL DISORDER [None]
  - INJECTION SITE HAEMATOMA [None]
  - INFLUENZA LIKE ILLNESS [None]
  - FATIGUE [None]
  - LISTLESS [None]
  - BODY TEMPERATURE INCREASED [None]
  - TRIGEMINAL NEURALGIA [None]
  - INJECTION SITE PRURITUS [None]
  - HEADACHE [None]
  - HEART RATE INCREASED [None]
